FAERS Safety Report 25936825 (Version 1)
Quarter: 2025Q4

REPORT INFORMATION
  Report Type: Spontaneous
  Country: US (occurrence: None)
  Receive Date: 20251017
  Receipt Date: 20251017
  Transmission Date: 20260117
  Serious: Yes (unspecified)
  Sender: FDA-CTU
  Company Number: None

PATIENT
  Age: 75 Year
  Sex: Male
  Weight: 70.65 kg

DRUGS (2)
  1. CIPROFLOXACIN [Suspect]
     Active Substance: CIPROFLOXACIN
  2. LEVOFLOXACIN [Concomitant]
     Active Substance: LEVOFLOXACIN

REACTIONS (6)
  - Tendon injury [None]
  - Therapy cessation [None]
  - Tendon pain [None]
  - Tendon disorder [None]
  - Bursitis [None]
  - Mobility decreased [None]

NARRATIVE: CASE EVENT DATE: 20250703
